FAERS Safety Report 21445623 (Version 1)
Quarter: 2022Q4

REPORT INFORMATION
  Report Type: Spontaneous
  Country: JP (occurrence: JP)
  Receive Date: 20221012
  Receipt Date: 20221012
  Transmission Date: 20230113
  Serious: Yes (Other)
  Sender: FDA-Public Use
  Company Number: JP-MTPC-MTPC2022-0027014

PATIENT
  Age: 49 Year
  Sex: Female

DRUGS (4)
  1. REMICADE [Suspect]
     Active Substance: INFLIXIMAB
     Indication: Crohn^s disease
     Route: 041
  2. AZATHIOPRINE [Suspect]
     Active Substance: AZATHIOPRINE
     Indication: Product used for unknown indication
     Route: 048
  3. MESALAMINE [Concomitant]
     Active Substance: MESALAMINE
     Route: 048
  4. ADALIMUMAB [Concomitant]
     Active Substance: ADALIMUMAB
     Route: 065

REACTIONS (3)
  - Anal stenosis [Unknown]
  - Rectal cancer [Unknown]
  - Anal fistula infection [Unknown]
